FAERS Safety Report 23252624 (Version 5)
Quarter: 2025Q1

REPORT INFORMATION
  Report Type: Spontaneous
  Country: US (occurrence: US)
  Receive Date: 20231201
  Receipt Date: 20250220
  Transmission Date: 20250409
  Serious: No
  Sender: PFIZER
  Company Number: US-PFIZER INC-202300410735

PATIENT
  Age: 76 Year
  Sex: Male
  Weight: 93.424 kg

DRUGS (4)
  1. INLYTA [Suspect]
     Active Substance: AXITINIB
     Indication: Renal cancer
     Dosage: 5 MG, 2X/DAY, D1 -28 Q28DAYS
     Route: 048
     Dates: start: 20230908
  2. INLYTA [Suspect]
     Active Substance: AXITINIB
     Dosage: 3 MG, 2X/DAY, D1 -28 Q28DAYS
     Route: 048
     Dates: start: 20240626
  3. KEYTRUDA [Concomitant]
     Active Substance: PEMBROLIZUMAB
     Indication: Renal cancer
     Route: 042
     Dates: start: 20230908
  4. ELIQUIS [Concomitant]
     Active Substance: APIXABAN
     Dosage: UNK, 3X/DAY (ELIQUIS (5 MG) TABLET ORAL PC (TID))
     Route: 048

REACTIONS (8)
  - Glossodynia [Unknown]
  - Palmar-plantar erythrodysaesthesia syndrome [Unknown]
  - Full blood count abnormal [Unknown]
  - Weight decreased [Unknown]
  - Heart rate decreased [Unknown]
  - Blood pressure systolic increased [Unknown]
  - Blood pressure diastolic decreased [Unknown]
  - Oxygen saturation decreased [Unknown]

NARRATIVE: CASE EVENT DATE: 20240221
